FAERS Safety Report 7986335-4 (Version None)
Quarter: 2011Q4

REPORT INFORMATION
  Report Type: 
  Country: None (occurrence: None)
  Receive Date: 20111216
  Receipt Date: 20110711
  Transmission Date: 20120403
  Serious: No
  Sender: FDA-Public Use
  Company Number: US-BRISTOL-MYERS SQUIBB COMPANY-15893605

PATIENT
  Age: 65 Year
  Sex: Male

DRUGS (6)
  1. GABAPENTIN [Concomitant]
  2. WELLBUTRIN [Concomitant]
  3. TRAZODONE HCL [Concomitant]
  4. ABILIFY [Suspect]
     Dates: end: 20101101
  5. ZOLOFT [Concomitant]
  6. EFFEXOR [Concomitant]

REACTIONS (3)
  - IRRITABILITY [None]
  - AKATHISIA [None]
  - PRURITUS [None]
